FAERS Safety Report 13561255 (Version 1)
Quarter: 2017Q2

REPORT INFORMATION
  Report Type: Spontaneous
  Country: DE (occurrence: DE)
  Receive Date: 20170518
  Receipt Date: 20170518
  Transmission Date: 20170830
  Serious: Yes (Other)
  Sender: FDA-Public Use
  Company Number: PHHY2017DE070794

PATIENT
  Sex: Male

DRUGS (1)
  1. COSENTYX [Suspect]
     Active Substance: SECUKINUMAB
     Indication: PSORIATIC ARTHROPATHY
     Dosage: 150 MG, UNK
     Route: 065
     Dates: start: 201612

REACTIONS (9)
  - Dry skin [Unknown]
  - Haemorrhagic diathesis [Unknown]
  - Weight increased [Unknown]
  - Hyperhidrosis [Unknown]
  - Pruritus [Unknown]
  - Oral pain [Unknown]
  - Toothache [Unknown]
  - Increased tendency to bruise [Unknown]
  - Dysgeusia [Unknown]
